FAERS Safety Report 8687505 (Version 3)
Quarter: 2013Q4

REPORT INFORMATION
  Report Type: Spontaneous
  Country: US (occurrence: US)
  Receive Date: 20120727
  Receipt Date: 20131101
  Transmission Date: 20140711
  Serious: No
  Sender: FDA-Public Use
  Company Number: US-009507513-1207USA007910

PATIENT
  Age: 63 Year
  Sex: Male
  Weight: 99.77 kg

DRUGS (6)
  1. CLARITIN REDITABS [Suspect]
     Indication: RHINORRHOEA
     Dosage: 10 MG, QD
     Route: 048
  2. CLARITIN REDITABS [Suspect]
     Indication: SNEEZING
     Dosage: 20 MG, ONCE
     Route: 048
     Dates: start: 20120707
  3. CLARITIN REDITABS [Suspect]
     Indication: SINUSITIS
  4. CLARITIN REDITABS [Suspect]
     Indication: MEDICAL OBSERVATION
  5. PRAVASTATIN SODIUM [Concomitant]
     Indication: PRODUCT USED FOR UNKNOWN INDICATION
     Dosage: 4 MG, QD
     Route: 048
  6. TERAZOSIN HYDROCHLORIDE [Concomitant]
     Indication: PRODUCT USED FOR UNKNOWN INDICATION
     Dosage: 5 MG, QD
     Route: 048

REACTIONS (3)
  - Overdose [Recovered/Resolved]
  - No adverse event [Recovered/Resolved]
  - Drug ineffective [Unknown]
